FAERS Safety Report 9801237 (Version 1)
Quarter: 2014Q1

REPORT INFORMATION
  Report Type: Spontaneous
  Country: FR (occurrence: FR)
  Receive Date: 20140107
  Receipt Date: 20140107
  Transmission Date: 20141002
  Serious: Yes (Death, Hospitalization)
  Sender: FDA-Public Use
  Company Number: FR-B.I. PHARMACEUTICALS,INC./RIDGEFIELD-2014-BI-00461FF

PATIENT
  Age: 76 Year
  Sex: Male

DRUGS (5)
  1. PRADAXA [Suspect]
     Indication: ATRIAL FIBRILLATION
     Route: 048
     Dates: start: 201302
  2. NOVONORM 2MG [Concomitant]
  3. ISOPTINE LP 240MG [Concomitant]
  4. INEXIUM 20MG [Concomitant]
  5. DEROXAT [Concomitant]

REACTIONS (2)
  - Activated partial thromboplastin time prolonged [Fatal]
  - Anaemia [Fatal]
